FAERS Safety Report 16507567 (Version 5)
Quarter: 2020Q1

REPORT INFORMATION
  Report Type: Spontaneous
  Country: US (occurrence: US)
  Receive Date: 20190701
  Receipt Date: 20200302
  Transmission Date: 20200409
  Serious: Yes (Hospitalization)
  Sender: FDA-Public Use
  Company Number: US-ACTELION-A-US2019-192342

PATIENT
  Age: 56 Year
  Sex: Male

DRUGS (27)
  1. BETAMETHASONE DIPROPIONATE. [Concomitant]
     Active Substance: BETAMETHASONE DIPROPIONATE
  2. TRAMADOL HCL [Concomitant]
     Active Substance: TRAMADOL HYDROCHLORIDE
  3. ATORVASTATIN CALCIUM. [Concomitant]
     Active Substance: ATORVASTATIN CALCIUM
     Dosage: 80 MG, QD
     Route: 048
  4. SENNA [Concomitant]
     Active Substance: SENNA LEAF\SENNOSIDES\SENNOSIDES A AND B
     Dosage: 8.6 MG, BID
     Route: 048
  5. MIDODRINE HCL [Concomitant]
     Active Substance: MIDODRINE HYDROCHLORIDE
     Dosage: 10 MG, QID
  6. OPSUMIT [Suspect]
     Active Substance: MACITENTAN
     Indication: PULMONARY ARTERIAL HYPERTENSION
     Dosage: 10 MG, QD
     Route: 048
  7. AURYXIA [Concomitant]
     Active Substance: TETRAFERRIC TRICITRATE DECAHYDRATE
  8. PENICILLIN V POTASSIUM. [Concomitant]
     Active Substance: PENICILLIN V POTASSIUM
  9. SIPAR [Concomitant]
  10. TAMSULOSIN HYDROCHLORIDE. [Concomitant]
     Active Substance: TAMSULOSIN HYDROCHLORIDE
  11. ELIQUIS [Concomitant]
     Active Substance: APIXABAN
     Dosage: 5 MG, BID
     Route: 048
     Dates: start: 20200115
  12. BUMETANIDE. [Concomitant]
     Active Substance: BUMETANIDE
  13. POTASSIUM CHLORIDE. [Concomitant]
     Active Substance: POTASSIUM CHLORIDE
  14. PANTOPRAZOLE [Concomitant]
     Active Substance: PANTOPRAZOLE
     Dosage: 40 MG, BID
     Route: 048
  15. TRIAMCINOLONE ACETONIDE. [Concomitant]
     Active Substance: TRIAMCINOLONE ACETONIDE
  16. SEVELAMER CARBONATE. [Concomitant]
     Active Substance: SEVELAMER CARBONATE
     Dosage: 800 MG, TID
     Route: 048
  17. DULOXETINE. [Concomitant]
     Active Substance: DULOXETINE
     Dosage: 20 MG, QD
     Route: 048
  18. AUGMENTIN [Concomitant]
     Active Substance: AMOXICILLIN\CLAVULANATE POTASSIUM
  19. BENAZEPRIL HYDROCHLORIDE. [Concomitant]
     Active Substance: BENAZEPRIL HYDROCHLORIDE
  20. HYDROCODONE/ACETAMINOPHEN [Concomitant]
     Active Substance: ACETAMINOPHEN\HYDROCODONE
  21. METOPROLOL SUCCINATE. [Concomitant]
     Active Substance: METOPROLOL SUCCINATE
     Dosage: 25 MG, QD
     Route: 048
  22. MIDODRINE HCL [Concomitant]
     Active Substance: MIDODRINE HYDROCHLORIDE
     Dosage: 10 MG, TID
  23. NEOMYCIN AND POLYMYXIN B SULFATES AND HYDROCO [Concomitant]
     Active Substance: HYDROCORTISONE\NEOMYCIN SULFATE\POLYMYXIN B SULFATE
  24. OXYCODONE AND ACETAMINOPHEN [Concomitant]
     Active Substance: ACETAMINOPHEN\OXYCODONE HYDROCHLORIDE
  25. CINACALCET. [Concomitant]
     Active Substance: CINACALCET
     Dosage: 30 MG, QD
     Route: 048
  26. ASPIRIN (E.C.) [Concomitant]
     Active Substance: ASPIRIN
     Dosage: 81 MG, QD
     Route: 048
  27. POLYETHYLENE GLYCOL [Concomitant]
     Active Substance: POLYETHYLENE GLYCOLS
     Dosage: 17 UNK, QD
     Route: 048

REACTIONS (34)
  - Gastrointestinal haemorrhage [Recovered/Resolved]
  - Skin ulcer [Recovered/Resolved]
  - Faeces discoloured [Recovered/Resolved]
  - Dyspnoea [Recovered/Resolved]
  - Upper gastrointestinal haemorrhage [Recovered/Resolved]
  - Abdominal pain lower [Recovered/Resolved]
  - End stage renal disease [Recovering/Resolving]
  - Cardiac failure [Recovering/Resolving]
  - Cellulitis [Recovering/Resolving]
  - Pulmonary embolism [Recovered/Resolved]
  - Renal cyst [Unknown]
  - Product dose omission [Recovered/Resolved]
  - Ventricular tachycardia [Recovering/Resolving]
  - Packed red blood cell transfusion [Unknown]
  - Duodenitis [Recovered/Resolved]
  - Septic shock [Recovering/Resolving]
  - Pulmonary hypertension [Not Recovered/Not Resolved]
  - Deep vein thrombosis [Recovering/Resolving]
  - Blood glucose increased [Recovering/Resolving]
  - Blood glucose decreased [Recovering/Resolving]
  - Leg amputation [Recovered/Resolved]
  - Gastritis erosive [Recovered/Resolved]
  - Anaemia [Recovered/Resolved]
  - Thrombocytopenia [Recovered/Resolved]
  - Calciphylaxis [Recovered/Resolved]
  - Haemodialysis [Recovering/Resolving]
  - Haematochezia [Recovered/Resolved]
  - Atrial fibrillation [Recovered/Resolved]
  - Haematuria [Recovered/Resolved]
  - Postoperative wound infection [Recovering/Resolving]
  - Haemoglobin decreased [Recovered/Resolved]
  - Blood creatinine increased [Recovering/Resolving]
  - Renal atrophy [Not Recovered/Not Resolved]
  - Hypotension [Unknown]

NARRATIVE: CASE EVENT DATE: 201912
